FAERS Safety Report 12698079 (Version 3)
Quarter: 2016Q4

REPORT INFORMATION
  Report Type: Spontaneous
  Country: US (occurrence: US)
  Receive Date: 20160830
  Receipt Date: 20161202
  Transmission Date: 20170207
  Serious: No
  Sender: FDA-Public Use
  Company Number: US-JNJFOC-20160716193

PATIENT
  Sex: Male
  Weight: 113.4 kg

DRUGS (6)
  1. RISPERDAL [Suspect]
     Active Substance: RISPERIDONE
     Indication: AUTISM
     Dosage: 9-10 YEARS AGO
     Route: 048
     Dates: end: 201512
  2. QUILLIVANT XR [Concomitant]
     Active Substance: METHYLPHENIDATE HYDROCHLORIDE
     Indication: AUTISM
     Route: 065
  3. RISPERDAL [Suspect]
     Active Substance: RISPERIDONE
     Indication: AUTISM
     Route: 048
     Dates: start: 201512, end: 2016
  4. RISPERDAL [Suspect]
     Active Substance: RISPERIDONE
     Indication: AUTISM
     Route: 048
  5. RISPERDAL [Suspect]
     Active Substance: RISPERIDONE
     Indication: AUTISM
     Dosage: ^250^
     Route: 048
  6. RISPERDAL [Suspect]
     Active Substance: RISPERIDONE
     Indication: AUTISM
     Route: 048
     Dates: start: 2016

REACTIONS (7)
  - Product packaging quantity issue [Unknown]
  - Mental disorder [Unknown]
  - Drug tolerance [Unknown]
  - Product packaging issue [Unknown]
  - Abnormal behaviour [Unknown]
  - Underdose [Unknown]
  - Weight increased [Unknown]

NARRATIVE: CASE EVENT DATE: 2016
